FAERS Safety Report 7306553-8 (Version None)
Quarter: 2011Q1

REPORT INFORMATION
  Report Type: 
  Country: None (occurrence: None)
  Receive Date: 20110222
  Receipt Date: 20110216
  Transmission Date: 20110831
  Serious: Yes (Hospitalization)
  Sender: FDA-Public Use
  Company Number: GB-AMGEN-GBRCT2011006205

PATIENT
  Age: 48 Year
  Sex: Male

DRUGS (7)
  1. PANITUMUMAB [Suspect]
     Indication: GASTROOESOPHAGEAL CANCER
     Dosage: UNK
     Dates: start: 20101126
  2. OXALIPLATIN [Concomitant]
     Indication: GASTROOESOPHAGEAL CANCER
     Dosage: UNK
     Dates: start: 20101126
  3. EPIRUBICIN [Concomitant]
     Indication: GASTROOESOPHAGEAL CANCER
     Dosage: UNK
     Dates: start: 20101126
  4. OMEPRAZOLE [Concomitant]
     Indication: DYSPEPSIA
     Dosage: 40 MG, QD
     Dates: start: 20100801
  5. AMITRIPTYLINE [Concomitant]
     Indication: MUSCULOSKELETAL PAIN
     Dosage: 10 MG, QD
     Dates: start: 20080701
  6. CAPECITABINE [Concomitant]
     Indication: GASTROOESOPHAGEAL CANCER
     Dosage: UNK
     Dates: start: 20101126, end: 20110121
  7. METOCLOPRAMIDE HCL [Concomitant]
     Indication: NAUSEA
     Dosage: 10 MG, QID
     Dates: start: 20110120

REACTIONS (2)
  - FEBRILE NEUTROPENIA [None]
  - PENILE PAIN [None]
